FAERS Safety Report 8403146-6 (Version None)
Quarter: 2012Q2

REPORT INFORMATION
  Report Type: 
  Country: None (occurrence: None)
  Receive Date: 20120601
  Receipt Date: 20120521
  Transmission Date: 20120825
  Serious: Yes (Other)
  Sender: FDA-Public Use
  Company Number: US-ELI_LILLY_AND_COMPANY-US201205007954

PATIENT

DRUGS (2)
  1. GEMCITABINE HYDROCHLORIDE [Suspect]
     Indication: RENAL CELL CARCINOMA
     Dosage: 1500 MG/M2, Q 2 WEEKS
     Route: 042
  2. DOXORUBICIN HCL [Concomitant]
     Indication: RENAL CELL CARCINOMA
     Dosage: 50 MG/M2, Q 2 WEEKS
     Route: 042

REACTIONS (1)
  - ACUTE LEUKAEMIA [None]
